FAERS Safety Report 6887743-5 (Version None)
Quarter: 2010Q3

REPORT INFORMATION
  Report Type: 
  Country: None (occurrence: None)
  Receive Date: 20100730
  Receipt Date: 20100728
  Transmission Date: 20110219
  Serious: Yes (Hospitalization)
  Sender: FDA-Public Use
  Company Number: CH-AMGEN-QUU417954

PATIENT
  Sex: Male
  Weight: 64 kg

DRUGS (8)
  1. VECTIBIX [Suspect]
     Indication: COLORECTAL CANCER
     Route: 042
     Dates: start: 20100429, end: 20100512
  2. MARCUMAR [Concomitant]
     Route: 048
  3. PANTOPRAZOLE [Concomitant]
     Route: 048
  4. METAMIZOLE [Concomitant]
     Route: 048
  5. TORESAMIDE [Concomitant]
     Route: 048
  6. PARACETAMOL [Concomitant]
     Route: 048
  7. DOMPERIDONE [Concomitant]
     Route: 048
  8. IRINOTECAN HCL [Concomitant]
     Dates: start: 20100201

REACTIONS (1)
  - LARGE INTESTINE PERFORATION [None]
